FAERS Safety Report 14084693 (Version 1)
Quarter: 2017Q4

REPORT INFORMATION
  Report Type: Report from Study
  Country: JP (occurrence: JP)
  Receive Date: 20171013
  Receipt Date: 20171013
  Transmission Date: 20180321
  Serious: Yes (Other)
  Sender: FDA-Public Use
  Company Number: JP-ROCHE-1563248

PATIENT

DRUGS (3)
  1. TRASTUZUMAB. [Suspect]
     Active Substance: TRASTUZUMAB
     Indication: GASTRIC CANCER
     Dosage: (COURSE 1, 8 MG/KG; COURSE 2 ONWARD, 6 MG /KG) INTRAVENOUSLY ON DAY 1 OF A 21-DAY CYCLE
     Route: 042
  2. GIMERACIL/OTERACIL POTASSIUM/TEGAFUR [Suspect]
     Active Substance: GIMERACIL\OTERACIL\TEGAFUR
     Indication: GASTRIC CANCER
     Dosage: (80-120MG PER DAY) ORALLY ON DAYS 1-28 OF A 42-DAY CYCLE
     Route: 048
  3. TRASTUZUMAB. [Suspect]
     Active Substance: TRASTUZUMAB
     Dosage: (COURSE 1, 8 MG/KG; COURSE 2 ONWARD, 6 MG /KG) INTRAVENOUSLY ON DAY 1 OF A 21-DAY CYCLE.
     Route: 042

REACTIONS (14)
  - Palmar-plantar erythrodysaesthesia syndrome [Unknown]
  - Anaemia [Unknown]
  - Blood bilirubin increased [Unknown]
  - Neutropenia [Unknown]
  - Leukopenia [Unknown]
  - Infusion related reaction [Unknown]
  - Diarrhoea [Unknown]
  - Febrile neutropenia [Unknown]
  - Hypertension [Unknown]
  - Fatigue [Unknown]
  - Decreased appetite [Unknown]
  - Thrombocytopenia [Unknown]
  - Hypoalbuminaemia [Unknown]
  - Stomatitis [Unknown]
